FAERS Safety Report 20348925 (Version 1)
Quarter: 2022Q1

REPORT INFORMATION
  Report Type: Spontaneous
  Country: KW (occurrence: KW)
  Receive Date: 20220119
  Receipt Date: 20220119
  Transmission Date: 20220424
  Serious: Yes (Hospitalization, Other)
  Sender: FDA-Public Use
  Company Number: KW-BION-010255

PATIENT
  Age: 5 Year
  Sex: Female

DRUGS (1)
  1. EXJADE [Suspect]
     Active Substance: DEFERASIROX
     Indication: Chelation therapy
     Dosage: 250 MG OD (16 MG/KG/DAY)?INCREASED TO 20 MG/KG/DAY?INCREASED TO 30 MG/KG/DAY
     Route: 048
     Dates: start: 201803

REACTIONS (2)
  - Duodenal ulcer perforation [Recovered/Resolved]
  - Iron overload [Unknown]

NARRATIVE: CASE EVENT DATE: 20200101
